FAERS Safety Report 19824785 (Version 1)
Quarter: 2021Q3

REPORT INFORMATION
  Report Type: Spontaneous
  Country: US (occurrence: US)
  Receive Date: 20210914
  Receipt Date: 20210914
  Transmission Date: 20211014
  Serious: Yes (Hospitalization, Other)
  Sender: FDA-Public Use
  Company Number: US-HIKMA PHARMACEUTICALS USA INC.-US-H14001-21-55400

PATIENT
  Age: 70 Year
  Sex: Male

DRUGS (2)
  1. METHOTREXATE. [Suspect]
     Active Substance: METHOTREXATE
     Indication: RHEUMATOID ARTHRITIS
     Route: 058
  2. SULFAMETHOXAZOLE, TRIMETHOPRIM [Suspect]
     Active Substance: SULFAMETHOXAZOLE\TRIMETHOPRIM
     Indication: CELLULITIS
     Dosage: UNKNOWN
     Route: 065

REACTIONS (13)
  - Skin lesion [Unknown]
  - Rash erythematous [Unknown]
  - Stomatitis [Unknown]
  - Epistaxis [Unknown]
  - Anaemia [Recovered/Resolved]
  - Myelosuppression [Recovered/Resolved]
  - Pancytopenia [Recovered/Resolved]
  - Toxicity to various agents [Unknown]
  - Eosinophilia [Recovered/Resolved]
  - Febrile neutropenia [Recovering/Resolving]
  - Mouth haemorrhage [Unknown]
  - Thrombocytopenia [Recovered/Resolved]
  - Skin erosion [Unknown]
